FAERS Safety Report 8428265-X (Version None)
Quarter: 2012Q2

REPORT INFORMATION
  Report Type: 
  Country: None (occurrence: None)
  Receive Date: 20120611
  Receipt Date: 20120214
  Transmission Date: 20120825
  Serious: No
  Sender: FDA-Public Use
  Company Number: US-ASTRAZENECA-2012SE09981

PATIENT
  Sex: Male

DRUGS (2)
  1. PULMICORT FLEXHALER [Suspect]
     Route: 055
     Dates: start: 20111101
  2. ALBUTEROL [Concomitant]

REACTIONS (6)
  - NASOPHARYNGITIS [None]
  - DYSPNOEA [None]
  - ADVERSE DRUG REACTION [None]
  - ASTHMA [None]
  - THROAT IRRITATION [None]
  - ADVERSE EVENT [None]
